FAERS Safety Report 4696451-0 (Version None)
Quarter: 2005Q2

REPORT INFORMATION
  Report Type: 
  Country: None (occurrence: None)
  Receive Date: 20050620
  Receipt Date: 20050607
  Transmission Date: 20051028
  Serious: Yes (Other)
  Sender: FDA-Public Use
  Company Number: 2005087350

PATIENT
  Sex: Female

DRUGS (3)
  1. DEPO-MEDROL [Suspect]
     Indication: LUMBAR SPINAL STENOSIS
     Dosage: 120 MG (1 D), EPIDURAL
     Route: 008
     Dates: start: 20031210
  2. BUPIVACAINE HCL [Suspect]
     Indication: LUMBAR SPINAL STENOSIS
     Dosage: 20 CC (1 D), EPIDURAL
     Route: 008
     Dates: start: 20031210
  3. LIDOCAINE [Concomitant]

REACTIONS (8)
  - BURNING SENSATION [None]
  - DIFFICULTY IN WALKING [None]
  - DRUG INEFFECTIVE [None]
  - INJECTION SITE PAIN [None]
  - OEDEMA PERIPHERAL [None]
  - PAIN IN EXTREMITY [None]
  - SENSORY DISTURBANCE [None]
  - VEIN DISCOLOURATION [None]
